FAERS Safety Report 13929912 (Version 2)
Quarter: 2017Q3

REPORT INFORMATION
  Report Type: Spontaneous
  Country: CA (occurrence: CA)
  Receive Date: 20170901
  Receipt Date: 20170901
  Transmission Date: 20171127
  Serious: Yes (Death, Hospitalization)
  Sender: FDA-Public Use
  Company Number: CA-CIPLA LTD.-2017CA14470

PATIENT

DRUGS (8)
  1. QUETIAPINE. [Suspect]
     Active Substance: QUETIAPINE
     Dosage: 25 MG, QD
     Route: 065
  2. CITALOPRAM [Suspect]
     Active Substance: CITALOPRAM HYDROBROMIDE
     Dosage: 20 MG, QD
     Route: 065
  3. ACETYLSALICYLIC ACID [Suspect]
     Active Substance: ASPIRIN
     Dosage: UNK, APPROX 15 PILLS OF UNSPECIFIED STRENGTH
     Route: 048
  4. ISONIAZID. [Suspect]
     Active Substance: ISONIAZID
     Dosage: 300 MG, QD
     Route: 065
  5. QUETIAPINE. [Suspect]
     Active Substance: QUETIAPINE
     Dosage: 25 MG, APPROX 20 PILLS OF 25 MG
     Route: 048
  6. ALCOHOL. [Suspect]
     Active Substance: ALCOHOL
     Dosage: UNK
     Route: 048
  7. ATOMOXETINE. [Suspect]
     Active Substance: ATOMOXETINE HYDROCHLORIDE
     Dosage: 60 MG, QD
     Route: 065
  8. ACETAMINOPHEN. [Suspect]
     Active Substance: ACETAMINOPHEN
     Dosage: UNK, APPROX 40 PILLS OF UNSPECIFIED STRENGTH
     Route: 048

REACTIONS (8)
  - Intentional overdose [Unknown]
  - Encephalopathy [Unknown]
  - Suicide attempt [Unknown]
  - Hepatic failure [Unknown]
  - Myocarditis [Fatal]
  - Cardiac failure [Fatal]
  - Myalgia [Unknown]
  - Oedema [Unknown]
